FAERS Safety Report 11383383 (Version 2)
Quarter: 2015Q3

REPORT INFORMATION
  Report Type: Spontaneous
  Country: JP (occurrence: JP)
  Receive Date: 20150814
  Receipt Date: 20150904
  Transmission Date: 20151125
  Serious: Yes (Other)
  Sender: FDA-Public Use
  Company Number: JP-AMGEN-JPNSP2015082274

PATIENT
  Age: 74 Year
  Sex: Female

DRUGS (9)
  1. LIMAPROST ALFADEX [Suspect]
     Active Substance: LIMAPROST
     Indication: LUMBAR SPINAL STENOSIS
     Dosage: 5 MG, TID
     Route: 048
     Dates: start: 20141014
  2. CELECOX [Concomitant]
     Active Substance: CELECOXIB
     Indication: LUMBAR SPINAL STENOSIS
     Dosage: 100 MG, BID
     Route: 048
     Dates: start: 20141014
  3. OPALMON [Concomitant]
     Active Substance: LIMAPROST
     Dosage: UNK
     Route: 065
  4. LYRICA [Concomitant]
     Active Substance: PREGABALIN
     Indication: LUMBAR SPINAL STENOSIS
     Dosage: 25 MG, BID
     Route: 048
     Dates: start: 20141014
  5. EDIROL [Concomitant]
     Active Substance: ELDECALCITOL
     Dosage: UNK
     Route: 065
  6. BONOTEO [Suspect]
     Active Substance: MINODRONIC ACID
     Indication: PRODUCT USED FOR UNKNOWN INDICATION
     Dosage: UNK
     Route: 065
  7. PRALIA [Suspect]
     Active Substance: DENOSUMAB
     Indication: PRODUCT USED FOR UNKNOWN INDICATION
     Dosage: 60 MG, Q6MO
     Route: 058
     Dates: start: 20141021
  8. DENOTAS [Concomitant]
     Active Substance: CALCIUM CARBONATE\CHOLECALCIFEROL\MAGNESIUM CARBONATE
     Indication: OSTEOPOROSIS
     Dosage: 2 DF, QD
     Route: 048
     Dates: start: 20141021, end: 20150728
  9. REBAMIPIDE [Suspect]
     Active Substance: REBAMIPIDE
     Indication: LUMBAR SPINAL STENOSIS
     Dosage: 100 MG, BID
     Route: 048
     Dates: start: 20141014

REACTIONS (1)
  - Osteonecrosis of jaw [Unknown]

NARRATIVE: CASE EVENT DATE: 20150701
